FAERS Safety Report 9892292 (Version 3)
Quarter: 2014Q1

REPORT INFORMATION
  Report Type: Spontaneous
  Country: US (occurrence: US)
  Receive Date: 20140212
  Receipt Date: 20140219
  Transmission Date: 20141002
  Serious: Yes (Other)
  Sender: FDA-Public Use
  Company Number: CHPA2013US015179

PATIENT
  Age: 48 Year
  Sex: Female

DRUGS (10)
  1. VOLTAREN GEL [Suspect]
     Indication: MUSCULOSKELETAL DISCOMFORT
     Dosage: SPARINGLY, QD
     Route: 061
  2. VOLTAREN GEL [Suspect]
     Indication: BACK DISORDER
     Dosage: SPARINGLY, QD
     Route: 061
  3. VOLTAREN GEL [Suspect]
     Indication: PERIARTHRITIS
     Dosage: SPARINGLY, QD
     Route: 061
  4. VOLTAREN GEL [Suspect]
     Indication: NECK PAIN
     Dosage: SPARINGLY, QD
     Route: 061
     Dates: start: 2000
  5. VOLTAREN GEL [Suspect]
     Indication: INTERVERTEBRAL DISC PROTRUSION
     Dosage: SPARINGLY, QD
     Route: 061
     Dates: start: 2011
  6. VOLTAREN GEL [Suspect]
     Indication: PAIN PROPHYLAXIS
  7. VOLTAREN [Suspect]
     Indication: BACK PAIN
     Dosage: UNK
     Route: 048
  8. FLECTOR [Concomitant]
     Dosage: UNK
     Route: 062
  9. LIDOCAINE [Concomitant]
     Dosage: UNK
     Route: 062
  10. VIT B12 [Concomitant]
     Indication: GASTRIC BYPASS
     Dosage: UNK

REACTIONS (10)
  - Arthritis [Not Recovered/Not Resolved]
  - Intervertebral disc degeneration [Not Recovered/Not Resolved]
  - Complex regional pain syndrome [Not Recovered/Not Resolved]
  - Intervertebral disc protrusion [Not Recovered/Not Resolved]
  - Fibromyalgia [Not Recovered/Not Resolved]
  - Nerve injury [Not Recovered/Not Resolved]
  - Exostosis [Not Recovered/Not Resolved]
  - Therapeutic response unexpected [Unknown]
  - Drug administered at inappropriate site [Unknown]
  - Wrong technique in drug usage process [Unknown]
